FAERS Safety Report 20489735 (Version 1)
Quarter: 2022Q1

REPORT INFORMATION
  Report Type: Spontaneous
  Country: US (occurrence: None)
  Receive Date: 20220217
  Receipt Date: 20220217
  Transmission Date: 20220423
  Serious: Yes (Hospitalization)
  Sender: FDA-Public Use
  Company Number: None

PATIENT
  Age: 71 Year
  Sex: Male
  Weight: 83.9 kg

DRUGS (11)
  1. BAMLANIVIMAB [Suspect]
     Active Substance: BAMLANIVIMAB
     Indication: COVID-19
     Dosage: OTHER FREQUENCY : ONCE;?
     Route: 042
     Dates: start: 20210122, end: 20210122
  2. ASPIRIN [Concomitant]
     Active Substance: ASPIRIN
  3. ROSUVASTATIN CALCIUM [Concomitant]
     Active Substance: ROSUVASTATIN CALCIUM
  4. ARGININE [Concomitant]
     Active Substance: ARGININE
  5. cholecalciferol (D3) [Concomitant]
  6. MAGNESIUM [Concomitant]
     Active Substance: MAGNESIUM
  7. melatonin/pyridoxal phosphate [Concomitant]
  8. TADALAFIL [Concomitant]
     Active Substance: TADALAFIL
  9. VITAMIN B COMPLEX [Concomitant]
     Active Substance: CYANOCOBALAMIN\DEXPANTHENOL\NIACINAMIDE\PYRIDOXINE HYDROCHLORIDE\RIBOFLAVIN 5^-PHOSPHATE SODIUM\THIA
  10. VITAMIN E [Concomitant]
     Active Substance: .ALPHA.-TOCOPHEROL
  11. ZINC ACETATE [Concomitant]
     Active Substance: ZINC ACETATE

REACTIONS (2)
  - Acute respiratory failure [None]
  - COVID-19 pneumonia [None]

NARRATIVE: CASE EVENT DATE: 20210125
